FAERS Safety Report 6886331-4 (Version None)
Quarter: 2010Q3

REPORT INFORMATION
  Report Type: 
  Country: None (occurrence: None)
  Receive Date: 20100729
  Receipt Date: 20080527
  Transmission Date: 20110219
  Serious: No
  Sender: FDA-Public Use
  Company Number: US-PFIZER INC-2008020748

PATIENT
  Sex: Female
  Weight: 84.545 kg

DRUGS (2)
  1. CELEBREX [Suspect]
     Indication: PAIN IN EXTREMITY
     Route: 048
     Dates: start: 20080229, end: 20080304
  2. MOBIC [Concomitant]
     Route: 048
     Dates: end: 20080301

REACTIONS (1)
  - OEDEMA PERIPHERAL [None]
